FAERS Safety Report 5268952-8 (Version None)
Quarter: 2007Q1

REPORT INFORMATION
  Report Type: 
  Country: None (occurrence: None)
  Receive Date: 20061212
  Receipt Date: 20060403
  Transmission Date: 20070707
  Serious: Yes (Other)
  Sender: FDA-Public Use
  Company Number: 2006UW05851

PATIENT
  Age: 59 Year
  Sex: Male

DRUGS (1)
  1. ZOLADEX [Suspect]
     Indication: PROSTATE CANCER
     Dosage: 10.8 MG Q3MO SQ
     Route: 058
     Dates: start: 20050601

REACTIONS (4)
  - DYSKINESIA [None]
  - MEDICATION ERROR [None]
  - MOOD SWINGS [None]
  - VOMITING [None]
